FAERS Safety Report 5289638-X (Version None)
Quarter: 2007Q2

REPORT INFORMATION
  Report Type: 
  Country: None (occurrence: None)
  Receive Date: 20070406
  Receipt Date: 20070330
  Transmission Date: 20071010
  Serious: Yes (Other)
  Sender: FDA-Public Use
  Company Number: 2006UW25083

PATIENT
  Age: 43 Year
  Sex: Female
  Weight: 104.5 kg

DRUGS (3)
  1. SEROQUEL [Suspect]
     Route: 048
  2. GEODON [Concomitant]
  3. THORAZINE [Concomitant]

REACTIONS (2)
  - DIABETES MELLITUS NON-INSULIN-DEPENDENT [None]
  - ILL-DEFINED DISORDER [None]
